FAERS Safety Report 6314081-1 (Version None)
Quarter: 2009Q3

REPORT INFORMATION
  Report Type: 
  Country: None (occurrence: None)
  Receive Date: 20090814
  Receipt Date: 20090731
  Transmission Date: 20100115
  Serious: Yes (Hospitalization)
  Sender: FDA-Public Use
  Company Number: LTI2009A00224

PATIENT
  Age: 72 Year
  Sex: Female

DRUGS (10)
  1. LANSOPRAZOLE [Suspect]
     Dosage: (30 MG) ORAL
     Route: 048
  2. HYDROCORTONE [Suspect]
     Dosage: ORAL
     Route: 048
     Dates: start: 20080801
  3. CALCIDOSE (CALCIUM CARBONATE) [Suspect]
     Dosage: ORAL
     Route: 048
     Dates: end: 20090101
  4. CYCLOPHOSPHAMIDE [Suspect]
     Indication: CREST SYNDROME
     Dosage: ORAL
     Route: 048
  5. CORDARONE [Suspect]
     Dosage: ORAL
     Route: 048
  6. PREVISCAN (FLUINDIONE) [Suspect]
     Dosage: ORAL
     Route: 048
  7. DIGOXIN [Suspect]
     Dosage: (0.125 MG) ORAL
     Route: 048
  8. COLCHIMAX (COLCHICINE, TIEMONIUM METHYLSULPHATE, PAPAVER SOMNIFERUM PO [Suspect]
     Dosage: ORAL
     Route: 048
  9. HOMEOPATIC PREPARATION (HOMEOPATIC PREPARATION) [Concomitant]
  10. GREEN SAND [Concomitant]

REACTIONS (3)
  - ADRENAL INSUFFICIENCY [None]
  - IDIOPATHIC LENTICULAR MUCOCUTANEOUS PIGMENTATION [None]
  - SKIN HYPERPIGMENTATION [None]
